FAERS Safety Report 5023907-3 (Version None)
Quarter: 2006Q2

REPORT INFORMATION
  Report Type: 
  Country: None (occurrence: None)
  Receive Date: 20060426
  Receipt Date: 20060213
  Transmission Date: 20061013
  Serious: Yes (Other)
  Sender: FDA-Public Use
  Company Number: 2006022732

PATIENT
  Age: 69 Year
  Sex: Male
  Weight: 97.5234 kg

DRUGS (6)
  1. LYRICA [Suspect]
     Indication: POLYNEUROPATHY
     Dosage: 150 MG (75 MG, 2 IN 1 D), ORAL
     Route: 048
     Dates: start: 20051105, end: 20060101
  2. TARKA [Concomitant]
  3. COUMADIN [Concomitant]
  4. AMITRIPTYLINE HCL [Concomitant]
  5. DOXAZOSIN (DOXAZOSIN) [Concomitant]
  6. DIGOXIN [Concomitant]

REACTIONS (2)
  - CONSTIPATION [None]
  - SOMNOLENCE [None]
